FAERS Safety Report 11643843 (Version 1)
Quarter: 2015Q4

REPORT INFORMATION
  Report Type: Spontaneous
  Country: US (occurrence: None)
  Receive Date: 20151019
  Receipt Date: 20151019
  Transmission Date: 20160304
  Serious: Yes (Other)
  Sender: FDA-Public Use
  Company Number: None

PATIENT
  Age: 21 Year
  Sex: Female
  Weight: 54.43 kg

DRUGS (1)
  1. LITHIUM. [Suspect]
     Active Substance: LITHIUM
     Indication: PRODUCT USED FOR UNKNOWN INDICATION
     Dosage: NOT WEAK I^M SURE   NOT SURE
     Route: 048
     Dates: start: 197908, end: 197909

REACTIONS (1)
  - Thinking abnormal [None]

NARRATIVE: CASE EVENT DATE: 197908
